FAERS Safety Report 7577743-4 (Version None)
Quarter: 2011Q2

REPORT INFORMATION
  Report Type: 
  Country: None (occurrence: None)
  Receive Date: 20110628
  Receipt Date: 20110622
  Transmission Date: 20111010
  Serious: Yes (Hospitalization)
  Sender: FDA-Public Use
  Company Number: IE-PFIZER INC-2011138196

PATIENT
  Age: 55 Year
  Sex: Female

DRUGS (1)
  1. VIBRAMYCIN [Suspect]
     Indication: URINARY TRACT INFECTION
     Dosage: 50-100MG DAILY
     Route: 048
     Dates: start: 20110523, end: 20110527

REACTIONS (1)
  - HEPATITIS [None]
